FAERS Safety Report 14961911 (Version 1)
Quarter: 2018Q2

REPORT INFORMATION
  Report Type: Spontaneous
  Country: TZ (occurrence: TZ)
  Receive Date: 20180601
  Receipt Date: 20180601
  Transmission Date: 20180711
  Serious: Yes (Other)
  Sender: FDA-Public Use
  Company Number: TZ-CIPLA (EU) LIMITED-2018TZ17786

PATIENT

DRUGS (6)
  1. EFAVIRENZ/EMTRICITABINE/TENOFOVIR [Suspect]
     Active Substance: EFAVIRENZ\EMTRICITABINE\TENOFOVIR DISOPROXIL FUMARATE
     Indication: HIV INFECTION WHO CLINICAL STAGE IV
     Dosage: UNK
     Route: 065
  2. FERRIC AMMONIUM CITRATE W/FOLIC ACID [Concomitant]
     Indication: ANAEMIA
     Dosage: 400 MG OF FERRIC AMMONIUM CITRATE / 3 MG OF FOLIC ACID DAILY FOR 1 MONTH
     Route: 065
  3. COTRIMOXAZOLE [Concomitant]
     Active Substance: SULFAMETHOXAZOLE\TRIMETHOPRIM
     Indication: PROPHYLAXIS
     Dosage: 960 MG, QD
     Route: 065
  4. FLUCONAZOLE ACCORD [Concomitant]
     Active Substance: FLUCONAZOLE
     Indication: OROPHARYNGEAL CANDIDIASIS
     Dosage: 150 MG, QD, 21 DAYS
     Route: 065
  5. FLUCONAZOLE ACCORD [Concomitant]
     Active Substance: FLUCONAZOLE
     Indication: OESOPHAGEAL CANDIDIASIS
  6. AMOXICILLIN. [Concomitant]
     Active Substance: AMOXICILLIN
     Indication: PNEUMONIA
     Dosage: 1 G TID DURING WEEK 1
     Route: 065

REACTIONS (2)
  - Tinea infection [Recovered/Resolved]
  - Immune reconstitution inflammatory syndrome [Recovered/Resolved]
